FAERS Safety Report 9350890 (Version 1)
Quarter: 2013Q2

REPORT INFORMATION
  Report Type: Spontaneous
  Country: US (occurrence: US)
  Receive Date: 20130617
  Receipt Date: 20130617
  Transmission Date: 20140414
  Serious: No
  Sender: FDA-Public Use
  Company Number: US-PFIZER INC-2013181049

PATIENT
  Age: 44 Year
  Sex: Female
  Weight: 44 kg

DRUGS (7)
  1. EFFEXOR XR [Suspect]
     Indication: MITRAL VALVE PROLAPSE
     Dosage: 150MG DAILY
     Dates: start: 2001
  2. EFFEXOR XR [Suspect]
     Indication: AUTONOMIC NERVOUS SYSTEM IMBALANCE
  3. XANAX [Concomitant]
     Dosage: UNK
  4. METOPROLOL [Concomitant]
     Dosage: UNK
  5. PREDNISONE [Concomitant]
     Dosage: UNK
  6. LOPRESSOR [Concomitant]
     Dosage: 50 MG, UNK
  7. VITAMIN B3 [Concomitant]
     Dosage: UNK

REACTIONS (7)
  - Off label use [Unknown]
  - Dysstasia [Unknown]
  - Feeling abnormal [Unknown]
  - Malaise [Unknown]
  - Disturbance in attention [Unknown]
  - Sensation of foreign body [Unknown]
  - Throat tightness [Unknown]
